FAERS Safety Report 4945800-4 (Version None)
Quarter: 2006Q1

REPORT INFORMATION
  Report Type: 
  Country: None (occurrence: None)
  Receive Date: 20060316
  Receipt Date: 20060210
  Transmission Date: 20060701
  Serious: Yes (Death)
  Sender: FDA-Public Use
  Company Number: JP-BRISTOL-MYERS SQUIBB COMPANY-13278452

PATIENT
  Age: 57 Year
  Sex: Male

DRUGS (11)
  1. BLEOMYCIN [Suspect]
     Indication: TESTIS CANCER
     Route: 042
     Dates: start: 19900503, end: 19900723
  2. VEPESID [Suspect]
     Indication: TESTIS CANCER
     Route: 041
     Dates: start: 19900503, end: 19900619
  3. BRIPLATIN [Suspect]
     Indication: TESTIS CANCER
     Route: 041
     Dates: start: 19900503, end: 19900904
  4. NEO-MINOPHAGEN C [Concomitant]
     Route: 042
     Dates: start: 19900503, end: 19900909
  5. PENTCILLIN [Concomitant]
     Route: 042
     Dates: start: 19900515, end: 19900916
  6. VITAMIN CAP [Concomitant]
     Route: 042
     Dates: start: 19900413, end: 19900912
  7. PRIMPERAN TAB [Concomitant]
     Route: 042
     Dates: start: 19900503, end: 19900904
  8. LASIX [Concomitant]
     Route: 042
     Dates: start: 19900503, end: 19900905
  9. GASTER [Concomitant]
     Route: 042
     Dates: start: 19900503, end: 19900905
  10. MANNITOL [Concomitant]
     Route: 042
     Dates: start: 19900503, end: 19900904
  11. FILGRASTIM [Concomitant]
     Route: 058
     Dates: start: 19900518, end: 19900912

REACTIONS (1)
  - INTERSTITIAL LUNG DISEASE [None]
